FAERS Safety Report 9163657 (Version 2)
Quarter: 2013Q1

REPORT INFORMATION
  Report Type: Spontaneous
  Country: US (occurrence: US)
  Receive Date: 20130314
  Receipt Date: 20130318
  Transmission Date: 20140127
  Serious: No
  Sender: FDA-Public Use
  Company Number: US-PFIZER INC-2013086234

PATIENT
  Age: 63 Year
  Sex: Female
  Weight: 70.3 kg

DRUGS (4)
  1. LYRICA [Suspect]
     Indication: NEURALGIA
     Dosage: 100 MG, 3X/DAY
     Dates: start: 201303
  2. LYRICA [Suspect]
     Dosage: 400 MG, DAILY
     Dates: start: 201303
  3. GABAPENTIN [Concomitant]
     Indication: NEURALGIA
     Dosage: 600 MG, 3X/DAY
  4. CALCITRIOL [Concomitant]
     Indication: BLOOD CALCIUM DECREASED
     Dosage: UNK

REACTIONS (1)
  - Weight increased [Not Recovered/Not Resolved]
